FAERS Safety Report 8165395-4 (Version None)
Quarter: 2012Q1

REPORT INFORMATION
  Report Type: 
  Country: None (occurrence: None)
  Receive Date: 20120223
  Receipt Date: 20120223
  Transmission Date: 20120608
  Serious: Yes (Death)
  Sender: FDA-Public Use
  Company Number: None

PATIENT
  Age: 75 Year
  Sex: Male
  Weight: 99.1 kg

DRUGS (1)
  1. PACLITAXEL [Suspect]
     Indication: METASTATIC MALIGNANT MELANOMA
     Dosage: 350 MG ONCE IV
     Route: 042
     Dates: start: 20120213, end: 20120213

REACTIONS (3)
  - DYSPNOEA [None]
  - DIZZINESS [None]
  - PALPITATIONS [None]
